FAERS Safety Report 7599205-0 (Version None)
Quarter: 2011Q3

REPORT INFORMATION
  Report Type: 
  Country: None (occurrence: None)
  Receive Date: 20110711
  Receipt Date: 20080918
  Transmission Date: 20111222
  Serious: Yes (Death, Other)
  Sender: FDA-Public Use
  Company Number: US-BAYER-200834044NA

PATIENT
  Age: 69 Year
  Sex: Male
  Weight: 86 kg

DRUGS (17)
  1. AVANDIA [Concomitant]
     Indication: TYPE 2 DIABETES MELLITUS
  2. CALCIUM CHLORIDE [Concomitant]
     Dosage: 1 GRAM
     Route: 042
     Dates: start: 20050429
  3. ZINACEF [Concomitant]
     Dosage: 1.5 GRAMS
     Route: 042
     Dates: start: 20050429
  4. METFORMIN HCL [Concomitant]
     Indication: TYPE 2 DIABETES MELLITUS
  5. SODIUM BICARBONATE [Concomitant]
     Dosage: 50 MILLIEQUIVALENTS X 4
     Route: 042
     Dates: start: 20050429
  6. TRASYLOL [Suspect]
     Indication: AORTIC VALVE REPLACEMENT
     Dosage: 2 X 10 6 KALLIKREIN INHIBITOR UNITS/ML
     Route: 042
     Dates: start: 20050429, end: 20050429
  7. PLASMA [Concomitant]
     Dosage: 700 ML, ONCE
     Route: 042
     Dates: start: 20050429
  8. MAGNESIUM SULFATE [Concomitant]
     Dosage: UNK
     Route: 042
     Dates: start: 20050429
  9. ALBUMIN (HUMAN) [Concomitant]
     Dosage: 12.5 GRAMS
     Route: 042
     Dates: start: 20050429
  10. RED BLOOD CELLS [Concomitant]
     Dosage: 4 U, ONCE
     Route: 042
  11. POTASSIUM CHLORIDE [Concomitant]
     Indication: ELECTROLYTE SUBSTITUTION THERAPY
  12. TRASYLOL [Suspect]
     Indication: CORONARY ARTERY BYPASS
     Dosage: 200 ML
     Route: 042
     Dates: start: 20050429, end: 20050429
  13. TOPROL-XL [Concomitant]
     Indication: HYPERTENSION
  14. LISINOPRIL [Concomitant]
     Indication: HYPERTENSION
  15. LASIX [Concomitant]
     Indication: HYPERTENSION
  16. HEPARIN [Concomitant]
     Dosage: 30,000 UNITS
     Route: 042
     Dates: start: 20050429
  17. HEPARIN [Concomitant]
     Dosage: 10,000 UNITS
     Route: 042
     Dates: start: 20050429

REACTIONS (16)
  - OEDEMA PERIPHERAL [None]
  - POLLAKIURIA [None]
  - RESPIRATORY FAILURE [None]
  - RENAL INJURY [None]
  - UNEVALUABLE EVENT [None]
  - ANXIETY [None]
  - PAIN [None]
  - ANHEDONIA [None]
  - FEAR [None]
  - STRESS [None]
  - RENAL FAILURE ACUTE [None]
  - RENAL IMPAIRMENT [None]
  - HEPATIC FAILURE [None]
  - INJURY [None]
  - EMOTIONAL DISTRESS [None]
  - MULTI-ORGAN FAILURE [None]
